FAERS Safety Report 9866465 (Version 2)
Quarter: 2014Q1

REPORT INFORMATION
  Report Type: Spontaneous
  Country: US (occurrence: US)
  Receive Date: 20140204
  Receipt Date: 20140205
  Transmission Date: 20141002
  Serious: No
  Sender: FDA-Public Use
  Company Number: US-009507513-1402USA000868

PATIENT
  Age: 72 Year
  Sex: Female

DRUGS (4)
  1. PROVENTIL [Suspect]
     Indication: COUGH
     Dosage: 2 PUFFS AS EVERY 6 HOURS
     Route: 055
     Dates: start: 20140130
  2. DOXYCYCLINE [Concomitant]
  3. LEVOTHYROXINE SODIUM [Concomitant]
  4. OMEPRAZOLE [Concomitant]

REACTIONS (2)
  - Cough [Not Recovered/Not Resolved]
  - Drug dose omission [Unknown]
